FAERS Safety Report 14252753 (Version 2)
Quarter: 2017Q4

REPORT INFORMATION
  Report Type: Spontaneous
  Country: US (occurrence: US)
  Receive Date: 20171205
  Receipt Date: 20171220
  Transmission Date: 20180321
  Serious: Yes (Other)
  Sender: FDA-Public Use
  Company Number: US-BAYER-2017-230462

PATIENT
  Sex: Female
  Weight: 97.51 kg

DRUGS (2)
  1. MIRENA [Suspect]
     Active Substance: LEVONORGESTREL
     Dosage: 20 MCG/24HR, CONT
     Route: 015
     Dates: start: 20130327, end: 20151204
  2. MIRENA [Suspect]
     Active Substance: LEVONORGESTREL

REACTIONS (8)
  - Menorrhagia [None]
  - Device dislocation [None]
  - Pain [Not Recovered/Not Resolved]
  - Abdominal discomfort [None]
  - Genital haemorrhage [None]
  - Complication of device removal [None]
  - Device breakage [None]
  - Menstruation irregular [None]

NARRATIVE: CASE EVENT DATE: 2015
